FAERS Safety Report 10090323 (Version 1)
Quarter: 2014Q2

REPORT INFORMATION
  Report Type: Report from Study
  Country: AU (occurrence: AU)
  Receive Date: 20140421
  Receipt Date: 20140421
  Transmission Date: 20141212
  Serious: Yes (Other)
  Sender: FDA-Public Use
  Company Number: AU-SA-2014SA044790

PATIENT
  Age: 56 Year
  Sex: Male

DRUGS (6)
  1. LANTUS [Suspect]
     Indication: PRODUCT USED FOR UNKNOWN INDICATION
     Dosage: DOSE:200 UNIT(S)
     Route: 065
     Dates: start: 2009
  2. FUROSEMIDE [Concomitant]
  3. PERINDOPRIL [Concomitant]
  4. PRAZOSIN HYDROCHLORIDE [Concomitant]
  5. ALL OTHER THERAPEUTIC PRODUCTS [Concomitant]
  6. METFORMIN [Concomitant]

REACTIONS (2)
  - Prostatic operation [Recovering/Resolving]
  - Dysuria [Recovering/Resolving]
